FAERS Safety Report 5843915-X (Version None)
Quarter: 2008Q3

REPORT INFORMATION
  Report Type: 
  Country: None (occurrence: None)
  Receive Date: 20080813
  Receipt Date: 20080801
  Transmission Date: 20090109
  Serious: Yes (Other)
  Sender: FDA-Public Use
  Company Number: JP-ROCHE-579712

PATIENT
  Age: 66 Year
  Sex: Male

DRUGS (1)
  1. VESANOID [Suspect]
     Indication: ACUTE PROMYELOCYTIC LEUKAEMIA
     Route: 048
     Dates: start: 20080724

REACTIONS (2)
  - ATRIOVENTRICULAR BLOCK COMPLETE [None]
  - PERICARDIAL EFFUSION [None]
